FAERS Safety Report 15461466 (Version 1)
Quarter: 2018Q4

REPORT INFORMATION
  Report Type: Spontaneous
  Country: US (occurrence: US)
  Receive Date: 20181003
  Receipt Date: 20181003
  Transmission Date: 20190204
  Serious: No
  Sender: FDA-Public Use
  Company Number: US-LEXICON PHARMACEUTICALS, INC-18-1606-01195

PATIENT
  Sex: Female

DRUGS (15)
  1. SANDOSTATIN LAR DEPOT [Concomitant]
     Active Substance: OCTREOTIDE ACETATE
  2. TELOTRISTAT ETHYL [Suspect]
     Active Substance: TELOTRISTAT ETHYL
     Route: 048
     Dates: start: 201708
  3. PANCRELIPASE. [Concomitant]
     Active Substance: PANCRELIPASE
  4. CAPECITABINE. [Concomitant]
     Active Substance: CAPECITABINE
  5. ONDANSETRON [Concomitant]
     Active Substance: ONDANSETRON
  6. OCTREOTIDE. [Concomitant]
     Active Substance: OCTREOTIDE
  7. TEMOZOLOMIDE. [Concomitant]
     Active Substance: TEMOZOLOMIDE
  8. IBUPROFEN. [Concomitant]
     Active Substance: IBUPROFEN
  9. MIRALAX [Concomitant]
     Active Substance: POLYETHYLENE GLYCOL 3350
  10. PROCHLORPERAZINE. [Concomitant]
     Active Substance: PROCHLORPERAZINE
  11. MULTIVITAMIN [Concomitant]
     Active Substance: VITAMINS
  12. LOPERAMIDE [Concomitant]
     Active Substance: LOPERAMIDE
  13. VIACTIV [Concomitant]
     Active Substance: CALCIUM\VITAMIN D\VITAMIN K5
  14. TELOTRISTAT ETHYL [Suspect]
     Active Substance: TELOTRISTAT ETHYL
     Indication: CARCINOID SYNDROME
     Route: 048
     Dates: start: 20170510, end: 201708
  15. HYOSCYAMINE. [Concomitant]
     Active Substance: HYOSCYAMINE

REACTIONS (1)
  - Lymph nodes scan abnormal [Unknown]
